FAERS Safety Report 9510234 (Version 2)
Quarter: 2013Q3

REPORT INFORMATION
  Report Type: Spontaneous
  Country: US (occurrence: US)
  Receive Date: 20130909
  Receipt Date: 20130909
  Transmission Date: 20140515
  Serious: No
  Sender: FDA-Public Use
  Company Number: US-BRISTOL-MYERS SQUIBB COMPANY-18701565

PATIENT
  Age: 23 Year
  Sex: Male
  Weight: 102.04 kg

DRUGS (4)
  1. ABILIFY TABS 30 MG [Suspect]
     Indication: ANXIETY
     Dosage: LAST DOSE:MARCH 2013?BOTTLE
     Dates: start: 2003
  2. ABILIFY TABS 30 MG [Suspect]
     Indication: BIPOLAR DISORDER
     Dosage: LAST DOSE:MARCH 2013?BOTTLE
     Dates: start: 2003
  3. ABILIFY TABS 30 MG [Suspect]
     Indication: SCHIZOPHRENIA
     Dosage: LAST DOSE:MARCH 2013?BOTTLE
     Dates: start: 2003
  4. KLONOPIN [Concomitant]
     Indication: BLOOD PRESSURE

REACTIONS (5)
  - Speech disorder [Unknown]
  - Blood pressure increased [Unknown]
  - Weight increased [Unknown]
  - Irritability [Unknown]
  - Drug ineffective [Unknown]
